FAERS Safety Report 21173683 (Version 1)
Quarter: 2022Q3

REPORT INFORMATION
  Report Type: Report from Study
  Country: GR (occurrence: GR)
  Receive Date: 20220804
  Receipt Date: 20220804
  Transmission Date: 20221026
  Serious: Yes (Other)
  Sender: FDA-Public Use
  Company Number: GR-TAKEDA-2022TUS051501

PATIENT
  Age: 63 Year

DRUGS (1)
  1. MARIBAVIR [Suspect]
     Active Substance: MARIBAVIR
     Indication: Cytomegalovirus infection
     Route: 065

REACTIONS (1)
  - Cytomegalovirus infection [Recovering/Resolving]
